FAERS Safety Report 7655113-8 (Version None)
Quarter: 2011Q3

REPORT INFORMATION
  Report Type: 
  Country: None (occurrence: None)
  Receive Date: 20110804
  Receipt Date: 20110725
  Transmission Date: 20111222
  Serious: Yes (Other)
  Sender: FDA-Public Use
  Company Number: NL-JNJFOC-20110711176

PATIENT
  Sex: Female

DRUGS (3)
  1. METHOTREXATE [Concomitant]
     Route: 065
  2. CLEMASTINE FUMARATE [Concomitant]
  3. REMICADE [Suspect]
     Indication: COLITIS ULCERATIVE
     Route: 042
     Dates: start: 20101101

REACTIONS (4)
  - INFUSION RELATED REACTION [None]
  - PALPITATIONS [None]
  - SINUSITIS [None]
  - ANGINA PECTORIS [None]
